FAERS Safety Report 10908119 (Version 1)
Quarter: 2015Q1

REPORT INFORMATION
  Report Type: Spontaneous
  Country: US (occurrence: None)
  Receive Date: 20150309
  Receipt Date: 20150309
  Transmission Date: 20150721
  Serious: Yes (Disabling)
  Sender: FDA-Public Use
  Company Number: None

PATIENT
  Age: 50 Year
  Sex: Female
  Weight: 92.53 kg

DRUGS (9)
  1. PROMETH WITH CODEINE [Suspect]
     Active Substance: CODEINE PHOSPHATE\PROMETHAZINE HYDROCHLORIDE
     Indication: BRONCHITIS
     Dosage: PROMETH WITH CODEINE, EVERY 4HRS, TAKEN BY MOUTH
     Route: 048
     Dates: start: 20150210, end: 20150219
  2. VITAMINS B [Concomitant]
  3. NASACORT NASAL SPRAY [Concomitant]
  4. CLARITIN-D 12 HOUR [Concomitant]
     Active Substance: LORATADINE\PSEUDOEPHEDRINE SULFATE
  5. VITAMINS D [Concomitant]
  6. ALEVE [Concomitant]
     Active Substance: NAPROXEN SODIUM
  7. TEA [Concomitant]
     Active Substance: TEA LEAF
  8. IMITREX [Concomitant]
     Active Substance: SUMATRIPTAN\SUMATRIPTAN SUCCINATE
  9. CLARITHROMYCIN. [Suspect]
     Active Substance: CLARITHROMYCIN
     Indication: BRONCHITIS
     Dosage: 1 TABLET
     Route: 048
     Dates: start: 20150210, end: 20150220

REACTIONS (16)
  - Hyperhidrosis [None]
  - Pyrexia [None]
  - Musculoskeletal stiffness [None]
  - Breath odour [None]
  - Laryngitis [None]
  - Breath sounds abnormal [None]
  - Cough [None]
  - Thinking abnormal [None]
  - Chills [None]
  - Dyspnoea [None]
  - Dizziness [None]
  - Chest discomfort [None]
  - Nausea [None]
  - Vomiting [None]
  - Confusional state [None]
  - Somnolence [None]

NARRATIVE: CASE EVENT DATE: 20150210
